FAERS Safety Report 7679323-9 (Version None)
Quarter: 2011Q3

REPORT INFORMATION
  Report Type: 
  Country: None (occurrence: None)
  Receive Date: 20110809
  Receipt Date: 20110726
  Transmission Date: 20111222
  Serious: Yes (Hospitalization)
  Sender: FDA-Public Use
  Company Number: 2011MA008384

PATIENT
  Age: 27 Month
  Sex: Male

DRUGS (1)
  1. DOXAZOSIN MESYLATE [Suspect]
     Indication: PRODUCT USED FOR UNKNOWN INDICATION
     Dosage: 2 MG, PO
     Route: 048

REACTIONS (3)
  - SINUS TACHYCARDIA [None]
  - FATIGUE [None]
  - ACCIDENTAL DRUG INTAKE BY CHILD [None]
